FAERS Safety Report 23598373 (Version 2)
Quarter: 2024Q2

REPORT INFORMATION
  Report Type: Report from Study
  Country: EG (occurrence: EG)
  Receive Date: 20240305
  Receipt Date: 20240404
  Transmission Date: 20240716
  Serious: Yes (Other)
  Sender: FDA-Public Use
  Company Number: EG-SANDOZ-SDZ2023EG010975

PATIENT
  Age: 12 Year
  Sex: Male
  Weight: 65 kg

DRUGS (3)
  1. OMNITROPE [Suspect]
     Active Substance: SOMATROPIN
     Dosage: 1.25 MG, QD
     Route: 058
     Dates: start: 20230511
  2. OMNITROPE [Suspect]
     Active Substance: SOMATROPIN
     Indication: Precocious puberty
     Dosage: 1.25 MG, QD
     Route: 058
     Dates: start: 20230511
  3. OMNITROPE [Suspect]
     Active Substance: SOMATROPIN
     Dosage: UNK
     Route: 065
     Dates: start: 20230808

REACTIONS (5)
  - Multiple use of single-use product [Not Recovered/Not Resolved]
  - Off label use [Not Recovered/Not Resolved]
  - Wrong technique in device usage process [Not Recovered/Not Resolved]
  - Device leakage [Unknown]
  - Incorrect dose administered [Unknown]

NARRATIVE: CASE EVENT DATE: 20230511
